FAERS Safety Report 18796760 (Version 2)
Quarter: 2021Q2

REPORT INFORMATION
  Report Type: Spontaneous
  Country: US (occurrence: US)
  Receive Date: 20210128
  Receipt Date: 20210526
  Transmission Date: 20210717
  Serious: Yes (Other)
  Sender: FDA-Public Use
  Company Number: US-GILEAD-2021-0513445

PATIENT
  Age: 57 Year
  Sex: Female

DRUGS (26)
  1. TRIUMEQ [Concomitant]
     Active Substance: ABACAVIR SULFATE\DOLUTEGRAVIR SODIUM\LAMIVUDINE
  2. POTASSIUM CHLORIDE. [Concomitant]
     Active Substance: POTASSIUM CHLORIDE
  3. NIFEDIPINE. [Concomitant]
     Active Substance: NIFEDIPINE
  4. ENTECAVIR. [Concomitant]
     Active Substance: ENTECAVIR
     Indication: HEPATITIS B
  5. KALETRA [Concomitant]
     Active Substance: LOPINAVIR\RITONAVIR
  6. ATORVASTATIN [Concomitant]
     Active Substance: ATORVASTATIN
  7. OMEGA 3 [DOCOSAHEXAENOIC ACID;EICOSAPENTAENOIC ACID] [Concomitant]
     Active Substance: DOCONEXENT\ICOSAPENT
  8. DETROL [Concomitant]
     Active Substance: TOLTERODINE TARTRATE
  9. EPZICOM [Concomitant]
     Active Substance: ABACAVIR SULFATE\LAMIVUDINE
  10. ZIAGEN [Concomitant]
     Active Substance: ABACAVIR SULFATE
  11. MIRABEGRON [Concomitant]
     Active Substance: MIRABEGRON
  12. TRUVADA [Suspect]
     Active Substance: EMTRICITABINE\TENOFOVIR DISOPROXIL FUMARATE
     Indication: HIV INFECTION
     Dosage: UNK
     Route: 048
     Dates: start: 2005
  13. STRIBILD [Suspect]
     Active Substance: COBICISTAT\ELVITEGRAVIR\EMTRICITABINE\TENOFOVIR DISOPROXIL FUMARATE
     Indication: HIV INFECTION
     Dosage: UNK
     Route: 065
     Dates: start: 2016, end: 2016
  14. LISINOPRIL. [Concomitant]
     Active Substance: LISINOPRIL
  15. HYDROCHLOROTHIAZIDE. [Concomitant]
     Active Substance: HYDROCHLOROTHIAZIDE
  16. PREDNISONE. [Concomitant]
     Active Substance: PREDNISONE
  17. GENVOYA [Concomitant]
     Active Substance: COBICISTAT\ELVITEGRAVIR\EMTRICITABINE\TENOFOVIR ALAFENAMIDE FUMARATE
  18. DULOXETINE. [Concomitant]
     Active Substance: DULOXETINE
  19. HYDROCODONE [Concomitant]
     Active Substance: HYDROCODONE
  20. TRUVADA [Suspect]
     Active Substance: EMTRICITABINE\TENOFOVIR DISOPROXIL FUMARATE
     Dosage: UNK
     Route: 048
     Dates: start: 2007, end: 20150907
  21. LYRICA [Concomitant]
     Active Substance: PREGABALIN
  22. ACYCLOVIR [ACICLOVIR] [Concomitant]
     Active Substance: ACYCLOVIR
  23. TRIZIVIR [Concomitant]
     Active Substance: ABACAVIR SULFATE\LAMIVUDINE\ZIDOVUDINE
  24. VESICARE [Concomitant]
     Active Substance: SOLIFENACIN SUCCINATE
  25. ZETIA [Concomitant]
     Active Substance: EZETIMIBE
  26. DIFLUNISAL. [Concomitant]
     Active Substance: DIFLUNISAL

REACTIONS (18)
  - Osteoporosis [Not Recovered/Not Resolved]
  - Transient ischaemic attack [Unknown]
  - Emotional distress [Not Recovered/Not Resolved]
  - Anhedonia [Not Recovered/Not Resolved]
  - Finger deformity [Unknown]
  - Arthralgia [Unknown]
  - Acute kidney injury [Not Recovered/Not Resolved]
  - Foot deformity [Unknown]
  - Pain in extremity [Unknown]
  - Depression [Not Recovered/Not Resolved]
  - Pain [Not Recovered/Not Resolved]
  - Chronic kidney disease [Unknown]
  - Pollakiuria [Unknown]
  - Cerebrovascular accident [Unknown]
  - Anxiety [Not Recovered/Not Resolved]
  - Joint range of motion decreased [Unknown]
  - Urinary tract infection [Unknown]
  - Fatigue [Unknown]

NARRATIVE: CASE EVENT DATE: 201509
